FAERS Safety Report 6209807-1 (Version None)
Quarter: 2009Q2

REPORT INFORMATION
  Report Type: 
  Country: None (occurrence: None)
  Receive Date: 20090601
  Receipt Date: 20090520
  Transmission Date: 20091009
  Serious: Yes (Other)
  Sender: FDA-Public Use
  Company Number: PHHY2009JP20154

PATIENT
  Sex: Female

DRUGS (1)
  1. FEMARA [Suspect]
     Indication: NEOPLASM PROPHYLAXIS
     Dosage: UNK
     Route: 048

REACTIONS (7)
  - ARTHRALGIA [None]
  - CHEST PAIN [None]
  - CHILLS [None]
  - CYSTITIS [None]
  - DYSURIA [None]
  - MALAISE [None]
  - PYREXIA [None]
